FAERS Safety Report 8805279 (Version 1)
Quarter: 2012Q4

REPORT INFORMATION
  Report Type: 
  Country: IE (occurrence: IE)
  Receive Date: 20120924
  Receipt Date: 20120924
  Transmission Date: 20130627
  Serious: Yes (Other)
  Sender: FDA-Public Use
  Company Number: PHHY2012IE081185

PATIENT
  Age: 71 Year
  Sex: Male

DRUGS (1)
  1. 5-FLUOROURACIL [Suspect]
     Indication: COLON CANCER

REACTIONS (4)
  - Cutaneous lupus erythematosus [Unknown]
  - Photosensitivity reaction [Unknown]
  - Hyperkeratosis [Unknown]
  - Dermatitis [Unknown]
